FAERS Safety Report 18683147 (Version 2)
Quarter: 2021Q1

REPORT INFORMATION
  Report Type: Report from Study
  Country: IL (occurrence: IL)
  Receive Date: 20201230
  Receipt Date: 20210226
  Transmission Date: 20210419
  Serious: Yes (Other)
  Sender: FDA-Public Use
  Company Number: NVSC2020IL006731

PATIENT
  Age: 58 Year
  Sex: Female

DRUGS (1)
  1. KISQALI [Suspect]
     Active Substance: RIBOCICLIB
     Indication: BREAST CANCER
     Dosage: 600 MG, QD (3 TABLETS OF 200MG)
     Route: 048
     Dates: start: 20191225

REACTIONS (17)
  - Erythema [Not Recovered/Not Resolved]
  - Pruritus [Not Recovered/Not Resolved]
  - Blood count abnormal [Not Recovered/Not Resolved]
  - Anaemia [Not Recovered/Not Resolved]
  - Chills [Recovered/Resolved]
  - Influenza like illness [Not Recovered/Not Resolved]
  - Dry skin [Not Recovered/Not Resolved]
  - Spinal disorder [Unknown]
  - Carbohydrate antigen 15-3 increased [Not Recovered/Not Resolved]
  - Pain in extremity [Not Recovered/Not Resolved]
  - Alopecia [Not Recovered/Not Resolved]
  - Dizziness [Not Recovered/Not Resolved]
  - Rash [Recovering/Resolving]
  - Photopsia [Recovered/Resolved]
  - Pyrexia [Not Recovered/Not Resolved]
  - Erythema [Recovered/Resolved]
  - Pruritus [Recovered/Resolved]

NARRATIVE: CASE EVENT DATE: 2020
